FAERS Safety Report 19768389 (Version 2)
Quarter: 2022Q3

REPORT INFORMATION
  Report Type: Other
  Country: DE (occurrence: None)
  Receive Date: 20210831
  Receipt Date: 20220816
  Transmission Date: 20221026
  Serious: Yes (Hospitalization)
  Sender: FDA-Public Use
  Company Number: DE-ROCHE-2174491

PATIENT
  Age: 72 Year
  Sex: Female

DRUGS (13)
  1. TOCILIZUMAB [Suspect]
     Active Substance: TOCILIZUMAB
     Indication: Rheumatoid arthritis
     Route: 058
     Dates: start: 201709, end: 20180105
  2. TOCILIZUMAB [Suspect]
     Active Substance: TOCILIZUMAB
     Route: 058
     Dates: start: 20180112
  3. TOCILIZUMAB [Suspect]
     Active Substance: TOCILIZUMAB
     Route: 058
     Dates: start: 202003
  4. TOCILIZUMAB [Suspect]
     Active Substance: TOCILIZUMAB
     Route: 058
     Dates: start: 202004, end: 202008
  5. RITUXIMAB [Suspect]
     Active Substance: RITUXIMAB
     Indication: Rheumatoid arthritis
     Route: 065
     Dates: start: 202008
  6. RINVOQ [Suspect]
     Active Substance: UPADACITINIB
     Indication: Rheumatoid arthritis
     Route: 065
     Dates: start: 202008
  7. METOPROLOL [Concomitant]
     Active Substance: METOPROLOL
  8. NOVODIGAL [Concomitant]
  9. OMEPRAZOLE [Concomitant]
     Active Substance: OMEPRAZOLE
  10. CHOLECALCIFEROL [Concomitant]
     Active Substance: CHOLECALCIFEROL
  11. JODETTEN [Concomitant]
  12. EDOXABAN TOSYLATE [Concomitant]
     Active Substance: EDOXABAN TOSYLATE
     Indication: Atrial fibrillation
     Route: 048
  13. PREDNISOLONE [Concomitant]
     Active Substance: PREDNISOLONE

REACTIONS (6)
  - Gastroenteritis [Recovered/Resolved]
  - Papule [Unknown]
  - Helicobacter gastritis [Unknown]
  - Overdose [Unknown]
  - Night sweats [Unknown]
  - Rheumatic disorder [Unknown]

NARRATIVE: CASE EVENT DATE: 20180105
